FAERS Safety Report 19732724 (Version 3)
Quarter: 2021Q4

REPORT INFORMATION
  Report Type: Spontaneous
  Country: US (occurrence: US)
  Receive Date: 20210823
  Receipt Date: 20211004
  Transmission Date: 20220303
  Serious: No
  Sender: FDA-Public Use
  Company Number: US-ORGANON-O2108USA001252

PATIENT
  Sex: Female
  Weight: 48.53 kg

DRUGS (1)
  1. NEXPLANON [Suspect]
     Active Substance: ETONOGESTREL
     Indication: Contraception
     Dosage: 1 DOSAGE FORM; LEFT ARM
     Dates: start: 20200309, end: 20210812

REACTIONS (5)
  - Weight decreased [Recovering/Resolving]
  - Alopecia [Recovering/Resolving]
  - Implant site fibrosis [Recovering/Resolving]
  - Device breakage [Recovered/Resolved]
  - Complication of device removal [Recovered/Resolved]
